FAERS Safety Report 7421835-7 (Version None)
Quarter: 2011Q2

REPORT INFORMATION
  Report Type: 
  Country: None (occurrence: None)
  Receive Date: 20110407
  Receipt Date: 20110329
  Transmission Date: 20111010
  Serious: Yes (Death)
  Sender: FDA-Public Use
  Company Number: UTC-005340

PATIENT
  Age: 69 Year
  Sex: Female
  Weight: 65.9 kg

DRUGS (3)
  1. REVAIO (SILDENAFIL CITRATE) [Concomitant]
  2. DIURETICS (DIURETICS) [Concomitant]
  3. REMODULIN [Suspect]
     Indication: PULMONARY HYPERTENSION
     Dosage: 57.6 UG/KG (0.04 UG/KG,1 IN 1 MIN)M INTRAVNEOUS
     Route: 042
     Dates: start: 20080206

REACTIONS (1)
  - PNEUMONIA [None]
